FAERS Safety Report 5136054-7 (Version None)
Quarter: 2006Q4

REPORT INFORMATION
  Report Type: 
  Country: None (occurrence: None)
  Receive Date: 20061020
  Receipt Date: 20061010
  Transmission Date: 20070319
  Serious: Yes (Other)
  Sender: FDA-Public Use
  Company Number: HQWYE666507JUL06

PATIENT
  Age: 55 Year
  Sex: Female

DRUGS (24)
  1. MYLOTARG [Suspect]
     Indication: ACUTE MYELOID LEUKAEMIA
     Dosage: 9.3 MG 1X PER 1 DAY, INTRAVENOUS
     Route: 042
     Dates: start: 20040908, end: 20040908
  2. VORICONAZOLE (VORICONAZOLE) [Concomitant]
  3. VANCOMYCIN [Concomitant]
  4. LEVOFLOXACIN [Concomitant]
  5. CEFEPIME [Concomitant]
  6. POTASSIUM CHLORIDE [Concomitant]
  7. NEUPOGEN [Concomitant]
  8. DEXAMETHASONE TAB [Concomitant]
  9. METRONIDAZOLE [Concomitant]
  10. SODIUM BICARBONATE IN PLASTIC CONTAINER [Concomitant]
  11. SODIUM CHLORIDE 0.9% [Concomitant]
  12. ACETAMINOPHEN [Concomitant]
  13. DIPHENHYDRAMINE HCL [Concomitant]
  14. NYSTATIN [Concomitant]
  15. SENNA (SENNA) [Concomitant]
  16. ALLOPURINOL [Concomitant]
  17. PHENYTOIN [Concomitant]
  18. PANTOPRAZOLE SODIUM [Concomitant]
  19. LEVETIRACETAM (LEVATIRACETAM) [Concomitant]
  20. OXYCODONE HCL [Concomitant]
  21. TRIAMCINOLONE ACETONIDE [Concomitant]
  22. LORAZEPAM [Concomitant]
  23. POLYTHYLENE GLYCOL (MACROGOL) [Concomitant]
  24. FUROSEMIDE [Concomitant]

REACTIONS (6)
  - ASCITES [None]
  - FEBRILE NEUTROPENIA [None]
  - PLEURAL EFFUSION [None]
  - PNEUMONIA [None]
  - VENOOCCLUSIVE LIVER DISEASE [None]
  - WEIGHT INCREASED [None]
